FAERS Safety Report 4796444-9 (Version None)
Quarter: 2005Q4

REPORT INFORMATION
  Report Type: 
  Country: None (occurrence: None)
  Receive Date: 20051011
  Receipt Date: 20041201
  Transmission Date: 20060501
  Serious: Yes (Other)
  Sender: FDA-Public Use
  Company Number: 2004-12-0052

PATIENT
  Age: 57 Year
  Sex: Female

DRUGS (2)
  1. TEMODAR [Suspect]
     Indication: METASTATIC MALIGNANT MELANOMA
     Dosage: 400 MG QD ORAL
     Route: 048
     Dates: start: 20040621, end: 20041123
  2. THALIDOMIDE [Suspect]
     Indication: METASTATIC MALIGNANT MELANOMA

REACTIONS (1)
  - PLATELET COUNT DECREASED [None]
